FAERS Safety Report 11334032 (Version 1)
Quarter: 2015Q3

REPORT INFORMATION
  Report Type: Spontaneous
  Country: US (occurrence: US)
  Receive Date: 20150803
  Receipt Date: 20150803
  Transmission Date: 20151125
  Serious: No
  Sender: FDA-Public Use
  Company Number: US-SA-2015SA003309

PATIENT
  Age: 64 Year
  Sex: Female

DRUGS (2)
  1. VIOXX [Concomitant]
     Active Substance: ROFECOXIB
  2. AMBIEN [Suspect]
     Active Substance: ZOLPIDEM TARTRATE
     Indication: INSOMNIA
     Route: 065
     Dates: start: 201401, end: 201406

REACTIONS (4)
  - Blood glucose decreased [Not Recovered/Not Resolved]
  - Amnesia [Not Recovered/Not Resolved]
  - Insomnia [Not Recovered/Not Resolved]
  - Appetite disorder [Not Recovered/Not Resolved]
